FAERS Safety Report 6865920-7 (Version None)
Quarter: 2010Q3

REPORT INFORMATION
  Report Type: 
  Country: None (occurrence: None)
  Receive Date: 20100719
  Receipt Date: 20100705
  Transmission Date: 20110219
  Serious: Yes (Hospitalization)
  Sender: FDA-Public Use
  Company Number: B0665107A

PATIENT
  Age: 47 Year
  Sex: Female

DRUGS (2)
  1. CALCIUM CARBONATE [Suspect]
     Indication: DYSPEPSIA
     Dosage: 100 MG
  2. VITAMIN D (FORMULATION UNKNOWN) (VITAMIN D) [Suspect]
     Dosage: TWICE PER DAY

REACTIONS (11)
  - BLOOD BICARBONATE INCREASED [None]
  - BLOOD CALCIUM INCREASED [None]
  - BLOOD CREATININE INCREASED [None]
  - BLOOD SODIUM DECREASED [None]
  - BLOOD UREA INCREASED [None]
  - CALCIUM IONISED INCREASED [None]
  - FATIGUE [None]
  - INCORRECT DOSE ADMINISTERED [None]
  - MEMORY IMPAIRMENT [None]
  - MILK-ALKALI SYNDROME [None]
  - SELF-MEDICATION [None]
